FAERS Safety Report 7515185-8 (Version None)
Quarter: 2011Q2

REPORT INFORMATION
  Report Type: 
  Country: None (occurrence: None)
  Receive Date: 20110601
  Receipt Date: 20100519
  Transmission Date: 20111010
  Serious: No
  Sender: FDA-Public Use
  Company Number: US-PFIZER INC-2010063569

PATIENT
  Sex: Female

DRUGS (1)
  1. CHANTIX [Suspect]
     Dosage: UNK
     Dates: start: 20100501, end: 20100501

REACTIONS (2)
  - DRY MOUTH [None]
  - DYSGEUSIA [None]
